FAERS Safety Report 10964178 (Version 1)
Quarter: 2015Q1

REPORT INFORMATION
  Report Type: Spontaneous
  Country: US (occurrence: US)
  Receive Date: 20150329
  Receipt Date: 20150329
  Transmission Date: 20150721
  Serious: Yes (Hospitalization)
  Sender: FDA-Public Use
  Company Number: PHHY2015US032755

PATIENT
  Age: 31 Year
  Sex: Male

DRUGS (2)
  1. INTERFERON BETA-1A [Suspect]
     Active Substance: INTERFERON BETA-1A
     Indication: MULTIPLE SCLEROSIS
     Route: 065
  2. GILENYA [Suspect]
     Active Substance: FINGOLIMOD HYDROCHLORIDE
     Indication: MULTIPLE SCLEROSIS
     Route: 065

REACTIONS (6)
  - Cardiac failure [Unknown]
  - Hypertension [Unknown]
  - Dyspnoea [Unknown]
  - Tachycardia [Unknown]
  - Chronic kidney disease [Unknown]
  - Proteinuria [Unknown]
